FAERS Safety Report 6223999-X (Version None)
Quarter: 2009Q2

REPORT INFORMATION
  Report Type: 
  Country: None (occurrence: None)
  Receive Date: 20090612
  Receipt Date: 20090306
  Transmission Date: 20091009
  Serious: No
  Sender: FDA-Public Use
  Company Number: US-ABBOTT-09P-163-0561168-00

PATIENT
  Sex: Female
  Weight: 69.008 kg

DRUGS (11)
  1. HUMIRA [Suspect]
     Indication: RHEUMATOID ARTHRITIS
     Route: 058
     Dates: start: 20090122
  2. ABILIFY [Concomitant]
     Indication: DEPRESSION
     Route: 048
  3. ABILIFY [Concomitant]
     Indication: ANXIETY
  4. DIOVAN HCT [Concomitant]
     Indication: BLOOD PRESSURE INCREASED
     Dosage: 320/25
     Route: 048
  5. METHOTREXATE [Concomitant]
     Indication: RHEUMATOID ARTHRITIS
     Route: 048
  6. PANTOPRAZOLE SODIUM [Concomitant]
     Indication: DYSPEPSIA
     Route: 048
  7. AMBIEN [Concomitant]
     Indication: INSOMNIA
     Route: 048
  8. SEROQUEL [Concomitant]
     Indication: DEPRESSION
     Route: 048
  9. SEROQUEL [Concomitant]
     Indication: INSOMNIA
  10. SEROQUEL [Concomitant]
     Indication: ANXIETY
  11. ASPIRIN [Concomitant]
     Indication: CARDIAC DISORDER
     Route: 048

REACTIONS (3)
  - INJECTION SITE HAEMORRHAGE [None]
  - INJECTION SITE PAIN [None]
  - WRONG TECHNIQUE IN DRUG USAGE PROCESS [None]
